FAERS Safety Report 9961208 (Version 1)
Quarter: 2014Q1

REPORT INFORMATION
  Report Type: Report from Study
  Country: DE (occurrence: DE)
  Receive Date: 20140305
  Receipt Date: 20140305
  Transmission Date: 20141002
  Serious: Yes (Other)
  Sender: FDA-Public Use
  Company Number: DE-INCYTE CORPORATION-2014IN000532

PATIENT
  Age: 66 Year
  Sex: Female
  Weight: 65 kg

DRUGS (4)
  1. INCB018424 [Suspect]
     Indication: MYELOFIBROSIS
     Dosage: 10 MG, PER DAY
     Route: 048
     Dates: start: 20130920
  2. INCB018424 [Suspect]
     Dosage: 5 MG, PER DAY
     Route: 048
     Dates: start: 20131126, end: 20131231
  3. INCB018424 [Suspect]
     Dosage: 5 MG, PER DAY
     Route: 048
     Dates: start: 20140116
  4. INCB018424 [Suspect]
     Dosage: 10 MG, PER DAY
     Route: 048
     Dates: start: 20140123, end: 20140207

REACTIONS (5)
  - C-reactive protein increased [Recovering/Resolving]
  - Arthralgia [Recovering/Resolving]
  - Anaemia [Recovering/Resolving]
  - Alanine aminotransferase increased [Recovering/Resolving]
  - Gamma-glutamyltransferase increased [Recovering/Resolving]
